FAERS Safety Report 9842335 (Version 2)
Quarter: 2014Q1

REPORT INFORMATION
  Report Type: Spontaneous
  Country: IT (occurrence: IT)
  Receive Date: 20140124
  Receipt Date: 20140204
  Transmission Date: 20141002
  Serious: Yes (Other)
  Sender: FDA-Public Use
  Company Number: IT-PFIZER INC-2014020826

PATIENT
  Age: 53 Year
  Sex: Male

DRUGS (4)
  1. IRINOTECAN HCL [Suspect]
     Indication: PANCREATIC CARCINOMA
     Dosage: 250 MG, CYCLIC
     Route: 042
     Dates: start: 20130729
  2. OXALIPLATIN [Suspect]
     Indication: PANCREATIC CARCINOMA
     Dosage: 120 MG, CYCLIC
     Route: 042
     Dates: start: 20130729
  3. FLUOROURACIL [Suspect]
     Indication: PANCREATIC CARCINOMA
     Dosage: 3500 MG, CYCLIC
     Route: 041
     Dates: start: 20130729
  4. LEDERFOLIN [Concomitant]
     Dosage: 316 MG, UNK
     Route: 042
     Dates: start: 20130729

REACTIONS (1)
  - Paraesthesia [Not Recovered/Not Resolved]
